FAERS Safety Report 15379061 (Version 1)
Quarter: 2018Q3

REPORT INFORMATION
  Report Type: Report from Study
  Country: EG (occurrence: EG)
  Receive Date: 20180913
  Receipt Date: 20180913
  Transmission Date: 20181010
  Serious: Yes (Death, Other)
  Sender: FDA-Public Use
  Company Number: EG-PFIZER INC-2018369277

PATIENT
  Age: 46 Year
  Sex: Female

DRUGS (3)
  1. DOXORUBICIN [Suspect]
     Active Substance: DOXORUBICIN
     Indication: TRIPLE NEGATIVE BREAST CANCER
     Dosage: UNK UNK, EVERY 3 WEEKS (CYCLIC, ALTERNATING WITH TAXOL WEEKLY REGIMEN)
  2. CYCLOPHOSPHAMIDE. [Suspect]
     Active Substance: CYCLOPHOSPHAMIDE
     Indication: TRIPLE NEGATIVE BREAST CANCER
     Dosage: UNK UNK, EVERY 3 WEEKS (CYCLIC, ALTERNATING WITH TAXOL WEEKLY REGIMEN)
  3. TAXOL [Suspect]
     Active Substance: PACLITAXEL
     Indication: TRIPLE NEGATIVE BREAST CANCER
     Dosage: UNK UNK, WEEKLY (CYCLIC, ALTERNATING WITH TAXOL WEEKLY REGIMEN)

REACTIONS (2)
  - Hepatitis fulminant [Fatal]
  - Neutropenia [Unknown]
